FAERS Safety Report 8897287 (Version 1)
Quarter: 2012Q4

REPORT INFORMATION
  Report Type: 
  Country: US (occurrence: US)
  Receive Date: 20121108
  Receipt Date: 20121108
  Transmission Date: 20130627
  Serious: No
  Sender: FDA-Public Use
  Company Number: US-AMGEN-USASP2012027248

PATIENT
  Age: 32 Year
  Sex: Female

DRUGS (9)
  1. ENBREL [Suspect]
     Indication: PRODUCT USED FOR UNKNOWN INDICATION
     Dosage: 50 mg, qwk
     Route: 058
  2. METHOTREXATE /00113802/ [Concomitant]
     Dosage: 25 mg, UNK
  3. HYDROXYZINE HCL [Concomitant]
     Dosage: 25 mg, UNK
  4. FOLIC ACID [Concomitant]
     Dosage: 5 mg, UNK
  5. EFFEXOR [Concomitant]
     Dosage: 75 mg, UNK
  6. KLONOPIN [Concomitant]
     Dosage: 0.5 mg, UNK
  7. LAMICTAL [Concomitant]
     Dosage: 5 mg, UNK
  8. PRILOSEC                           /00661201/ [Concomitant]
     Dosage: 10 mg, UNK
  9. MELOXICAM [Concomitant]
     Dosage: UNK

REACTIONS (1)
  - Neck mass [Recovering/Resolving]
